FAERS Safety Report 11693817 (Version 1)
Quarter: 2015Q4

REPORT INFORMATION
  Report Type: Other
  Country: IT (occurrence: IT)
  Receive Date: 20151103
  Receipt Date: 20151103
  Transmission Date: 20160304
  Serious: Yes (Hospitalization)
  Sender: FDA-Public Use
  Company Number: IT-MYLANLABS-2015M1036907

PATIENT

DRUGS (6)
  1. METFORMINA DOC [Concomitant]
     Indication: HYPERGLYCAEMIA
     Dosage: 500 MG, UNK
     Route: 048
  2. LASIX [Concomitant]
     Active Substance: FUROSEMIDE
     Indication: HYPERTENSIVE HEART DISEASE
     Dosage: 1 DF, UNK
     Route: 048
  3. LIBRADIN                           /01301602/ [Concomitant]
     Active Substance: BARNIDIPINE HYDROCHLORIDE
     Indication: HYPERTENSIVE HEART DISEASE
     Dosage: 1 DF, UNK
     Route: 048
  4. BISOPROLOLO MYLAN [Concomitant]
     Indication: MYOCARDIAL ISCHAEMIA
     Dosage: 1 DF
     Route: 048
  5. CLOPIDOGREL [Suspect]
     Active Substance: CLOPIDOGREL BISULFATE
     Indication: MYOCARDIAL ISCHAEMIA
     Dosage: 75 MG DAILY
     Route: 048
     Dates: start: 20151008, end: 20151015
  6. ATORVASTATINA MYLAN [Concomitant]
     Active Substance: ATORVASTATIN
     Indication: CAROTID ARTERY STENOSIS
     Dosage: 40 MG, UNK
     Route: 048

REACTIONS (4)
  - Transient ischaemic attack [Recovered/Resolved]
  - Motor dysfunction [Recovered/Resolved]
  - Aphasia [Recovered/Resolved]
  - Azotaemia [Unknown]

NARRATIVE: CASE EVENT DATE: 20151015
